FAERS Safety Report 12842359 (Version 1)
Quarter: 2016Q4

REPORT INFORMATION
  Report Type: Spontaneous
  Country: IE (occurrence: IE)
  Receive Date: 20161013
  Receipt Date: 20161013
  Transmission Date: 20170207
  Serious: Yes (Hospitalization, Other)
  Sender: FDA-Public Use
  Company Number: IE-ORION CORPORATION ORION PHARMA-TREX2016-1960

PATIENT
  Age: 62 Year
  Sex: Male

DRUGS (3)
  1. PLAQUENIL [Suspect]
     Active Substance: HYDROXYCHLOROQUINE SULFATE
     Indication: SYSTEMIC LUPUS ERYTHEMATOSUS
     Route: 065
  2. FOLIC ACID. [Concomitant]
     Active Substance: FOLIC ACID
     Route: 065
  3. METHOTREXATE (TRADE NAME UNKNOWN) [Suspect]
     Active Substance: METHOTREXATE
     Indication: SYSTEMIC LUPUS ERYTHEMATOSUS
     Route: 065

REACTIONS (10)
  - Retroperitoneal neoplasm metastatic [Unknown]
  - Flank pain [Unknown]
  - Weight decreased [Unknown]
  - Pyrexia [Unknown]
  - Chest discomfort [Unknown]
  - Night sweats [Unknown]
  - Malaise [Unknown]
  - Metastases to liver [Unknown]
  - Metastatic renal cell carcinoma [Not Recovered/Not Resolved]
  - Pulmonary mass [Unknown]
